FAERS Safety Report 24762862 (Version 8)
Quarter: 2025Q2

REPORT INFORMATION
  Report Type: Spontaneous
  Country: US (occurrence: US)
  Receive Date: 20241222
  Receipt Date: 20250428
  Transmission Date: 20250717
  Serious: Yes (Disabling, Other)
  Sender: SANOFI AVENTIS
  Company Number: US-SANOFI-02349076

PATIENT
  Age: 58 Year
  Sex: Female
  Weight: 72.73 kg

DRUGS (14)
  1. DUPIXENT [Suspect]
     Active Substance: DUPILUMAB
     Indication: Asthma
     Route: 058
     Dates: start: 20241022, end: 20241022
  2. DUPIXENT [Suspect]
     Active Substance: DUPILUMAB
     Indication: Pneumonia
     Dosage: 300 MG, QOW
     Route: 058
     Dates: start: 202410, end: 20241120
  3. DUPIXENT [Suspect]
     Active Substance: DUPILUMAB
     Indication: Eosinophilic pneumonia chronic
  4. DUPIXENT [Suspect]
     Active Substance: DUPILUMAB
     Indication: Eosinophilic pneumonia chronic
     Route: 058
  5. NUCALA [Concomitant]
     Active Substance: MEPOLIZUMAB
     Dates: start: 202412
  6. SYMBICORT [Concomitant]
     Active Substance: BUDESONIDE\FORMOTEROL FUMARATE DIHYDRATE
  7. EPIPEN [Concomitant]
     Active Substance: EPINEPHRINE
  8. OLOPATADINE [Concomitant]
     Active Substance: OLOPATADINE
  9. ESTRADIOL [Concomitant]
     Active Substance: ESTRADIOL
     Dosage: UNK UNK, QW
     Dates: start: 20241216
  10. IVERMECTIN [Concomitant]
     Active Substance: IVERMECTIN
  11. ELIDEL [Concomitant]
     Active Substance: PIMECROLIMUS
  12. EPINEPHRINE [Concomitant]
     Active Substance: EPINEPHRINE
  13. PROGESTERONE [Concomitant]
     Active Substance: PROGESTERONE
  14. PIMECROLIMUS [Concomitant]
     Active Substance: PIMECROLIMUS

REACTIONS (27)
  - Eosinophilic pneumonia chronic [Unknown]
  - Eosinophilia [Recovering/Resolving]
  - Dyspnoea [Recovered/Resolved]
  - Chest discomfort [Recovered/Resolved]
  - Lung infiltration [Unknown]
  - Rash erythematous [Recovered/Resolved]
  - Rash pruritic [Unknown]
  - Rosacea [Unknown]
  - Spondylolisthesis [Unknown]
  - Cervical radiculopathy [Unknown]
  - Candida infection [Unknown]
  - Dysphagia [Not Recovered/Not Resolved]
  - Odynophagia [Recovering/Resolving]
  - Productive cough [Unknown]
  - Respiratory disorder [Unknown]
  - Muscle spasms [Unknown]
  - Contusion [Unknown]
  - Hunger [Unknown]
  - Weight increased [Unknown]
  - Back pain [Unknown]
  - Sinusitis [Unknown]
  - Fatigue [Not Recovered/Not Resolved]
  - Eosinophil count increased [Unknown]
  - Eye pruritus [Recovered/Resolved]
  - Rash [Unknown]
  - Arthralgia [Unknown]
  - Off label use [Unknown]

NARRATIVE: CASE EVENT DATE: 20240101
